FAERS Safety Report 4887292-X (Version None)
Quarter: 2005Q4

REPORT INFORMATION
  Report Type: 
  Country: None (occurrence: None)
  Receive Date: 20051221
  Receipt Date: 20051026
  Transmission Date: 20060501
  Serious: No
  Sender: FDA-Public Use
  Company Number: US-YAMANOUCHI-YPA20050523

PATIENT
  Age: 58 Year
  Sex: Female

DRUGS (5)
  1. VESICARE [Suspect]
     Indication: HYPERTONIC BLADDER
     Dosage: 5 MG PO
     Route: 048
     Dates: start: 20051002
  2. ZOLOFT [Concomitant]
  3. FOSAMAX [Concomitant]
  4. TRIAZADONE [Concomitant]
  5. ATTAVAN [Concomitant]

REACTIONS (3)
  - CONSTIPATION [None]
  - HEADACHE [None]
  - NAUSEA [None]
